FAERS Safety Report 8160098-4 (Version None)
Quarter: 2012Q1

REPORT INFORMATION
  Report Type: 
  Country: None (occurrence: None)
  Receive Date: 20120103
  Receipt Date: 20110928
  Transmission Date: 20120608
  Serious: No
  Sender: FDA-Public Use
  Company Number: AE-2011-001564

PATIENT
  Age: 30 Year
  Sex: Female

DRUGS (7)
  1. RIBAVIRIN [Concomitant]
  2. CLONOPIN [Concomitant]
  3. KLONOPIN [Concomitant]
  4. INCIVEK [Suspect]
     Dosage: 2250 MG (750 MG, 3 IN 1 D), ORAL
     Route: 048
     Dates: start: 20110801
  5. PROZAC [Concomitant]
  6. INTERFERON [Concomitant]
  7. PROMETHAZINE [Concomitant]

REACTIONS (5)
  - FATIGUE [None]
  - CONFUSIONAL STATE [None]
  - ANXIETY [None]
  - PAIN [None]
  - NAUSEA [None]
